FAERS Safety Report 8162317-7 (Version None)
Quarter: 2012Q1

REPORT INFORMATION
  Report Type: 
  Country: None (occurrence: None)
  Receive Date: 20120224
  Receipt Date: 20110718
  Transmission Date: 20120608
  Serious: Yes (Other)
  Sender: FDA-Public Use
  Company Number: US-MYLANLABS-2011S1014946

PATIENT
  Sex: Male

DRUGS (5)
  1. CARVEDILOL [Suspect]
  2. SIMVASTATIN [Suspect]
  3. HYDROCHLOROTHIAZIDE [Suspect]
  4. VIAGRA [Suspect]
  5. ACETYLSALICYLIC ACID SRT [Suspect]

REACTIONS (1)
  - RENAL FAILURE [None]
